FAERS Safety Report 4868793-7 (Version None)
Quarter: 2005Q4

REPORT INFORMATION
  Report Type: 
  Country: None (occurrence: None)
  Receive Date: 20051229
  Receipt Date: 20051222
  Transmission Date: 20060501
  Serious: Yes (Life-Threatening)
  Sender: FDA-Public Use
  Company Number: JP-ABBOTT-05P-087-0320723-00

PATIENT
  Sex: Male

DRUGS (4)
  1. KLARICID [Suspect]
     Indication: OTITIS EXTERNA
     Route: 048
     Dates: start: 20051212, end: 20051215
  2. SERRAPEPTASE [Suspect]
     Indication: DRUG USE FOR UNKNOWN INDICATION
     Route: 048
     Dates: start: 20051212, end: 20051215
  3. CLOFEDANOL HYDROCHLORIDE [Suspect]
     Indication: DRUG USE FOR UNKNOWN INDICATION
     Route: 048
     Dates: start: 20051212, end: 20051214
  4. SALBUTAMOL SULFATE [Suspect]
     Indication: DRUG USE FOR UNKNOWN INDICATION
     Route: 048
     Dates: start: 20051214, end: 20051215

REACTIONS (2)
  - ANURIA [None]
  - URINARY RETENTION [None]
